FAERS Safety Report 9259101 (Version 2)
Quarter: 2013Q4

REPORT INFORMATION
  Report Type: Spontaneous
  Country: FR (occurrence: FR)
  Receive Date: 20130426
  Receipt Date: 20131024
  Transmission Date: 20140711
  Serious: Yes (Hospitalization)
  Sender: FDA-Public Use
  Company Number: FR-PFIZER INC-2013126221

PATIENT
  Age: 36 Year
  Sex: Male

DRUGS (6)
  1. ADVIL [Suspect]
     Indication: INFECTION
     Dosage: UNK
     Route: 048
  2. IBUPROFEN [Suspect]
     Indication: EAR PAIN
     Dosage: UNK
     Dates: start: 20121017, end: 20121017
  3. IBUPROFEN [Suspect]
     Indication: RHINORRHOEA
  4. KEPPRA [Concomitant]
     Indication: EPILEPSY
  5. TEGRETOL [Concomitant]
     Indication: EPILEPSY
  6. EPITOMAX [Concomitant]
     Indication: EPILEPSY

REACTIONS (3)
  - Rash maculo-papular [Recovered/Resolved]
  - Pyrexia [Recovered/Resolved]
  - Dermatitis exfoliative [Recovered/Resolved]
